FAERS Safety Report 4974090-1 (Version None)
Quarter: 2006Q2

REPORT INFORMATION
  Report Type: 
  Country: None (occurrence: None)
  Receive Date: 20060417
  Receipt Date: 20050525
  Transmission Date: 20061013
  Serious: Yes (Hospitalization)
  Sender: FDA-Public Use
  Company Number: US-ROCHE-443770

PATIENT
  Age: 50 Year
  Sex: Male
  Weight: 99 kg

DRUGS (16)
  1. PEG-INTERFERON ALFA 2A (RO 25-8310) [Suspect]
     Dosage: FREQUENCY REPORTED AS WEEKLY.
     Route: 058
     Dates: start: 20050408, end: 20050526
  2. RIBAVIRIN [Suspect]
     Dosage: FORM REPORTED AS PILL. DATE OF LAST DOSE PRIOR TO SAE WAS 24 MAY 2005.
     Route: 048
     Dates: start: 20050408, end: 20050526
  3. ALLOPURINOL [Concomitant]
  4. OXYCONTIN [Concomitant]
  5. CYPROHEPTADINE HCL [Concomitant]
  6. ASPIRIN [Concomitant]
  7. MIRTAZAPINE [Concomitant]
  8. CLONAZEPAM [Concomitant]
  9. MILK THISTLE [Concomitant]
  10. KLOR-CON [Concomitant]
  11. COZAAR [Concomitant]
  12. FUROSEMIDE [Concomitant]
  13. COLACE [Concomitant]
  14. TEMAZEPAM [Concomitant]
  15. CENTRUM SILVER [Concomitant]
  16. URSODIOL [Concomitant]

REACTIONS (3)
  - CONFUSIONAL STATE [None]
  - DEPRESSED LEVEL OF CONSCIOUSNESS [None]
  - HYPOTENSION [None]
